FAERS Safety Report 12879654 (Version 4)
Quarter: 2018Q3

REPORT INFORMATION
  Report Type: Spontaneous
  Country: GR (occurrence: GR)
  Receive Date: 20161025
  Receipt Date: 20180723
  Transmission Date: 20181010
  Serious: Yes (Death, Life-Threatening, Hospitalization, Other)
  Sender: FDA-Public Use
  Company Number: GR-AXELLIA-000995

PATIENT
  Age: 76 Year
  Sex: Male

DRUGS (6)
  1. MEROPENEM. [Suspect]
     Active Substance: MEROPENEM
     Indication: LOWER RESPIRATORY TRACT INFECTION
     Route: 042
  2. VANCOMYCIN [Suspect]
     Active Substance: VANCOMYCIN
     Indication: CORYNEBACTERIUM INFECTION
  3. METHYLPREDNISOLONE. [Suspect]
     Active Substance: METHYLPREDNISOLONE
     Indication: DERMATITIS ATOPIC
     Route: 048
  4. LINEZOLID. [Suspect]
     Active Substance: LINEZOLID
     Indication: CORYNEBACTERIUM INFECTION
     Route: 065
  5. CEFTRIAXONE. [Suspect]
     Active Substance: CEFTRIAXONE
     Indication: LOWER RESPIRATORY TRACT INFECTION
  6. MOXIFLOXACIN/MOXIFLOXACIN HYDROCHLORIDE [Suspect]
     Active Substance: MOXIFLOXACIN
     Indication: LOWER RESPIRATORY TRACT INFECTION

REACTIONS (11)
  - Respiratory alkalosis [None]
  - Opportunistic infection [None]
  - Corynebacterium infection [Fatal]
  - Respiratory failure [Fatal]
  - Anaemia [None]
  - Acute respiratory distress syndrome [None]
  - Septic shock [Fatal]
  - Laboratory test interference [None]
  - Blood creatinine increased [None]
  - Multiple-drug resistance [Fatal]
  - Lower respiratory tract infection [None]
